FAERS Safety Report 9824957 (Version 1)
Quarter: 2014Q1

REPORT INFORMATION
  Report Type: Spontaneous
  Country: NO (occurrence: NO)
  Receive Date: 20140117
  Receipt Date: 20140117
  Transmission Date: 20141002
  Serious: Yes (Death)
  Sender: FDA-Public Use
  Company Number: NO-JNJFOC-20140106828

PATIENT
  Age: 55 Year
  Sex: Female

DRUGS (3)
  1. HALDOL [Suspect]
     Indication: SCHIZOPHRENIA
     Route: 065
     Dates: start: 20130512, end: 20130512
  2. ABILIFY [Suspect]
     Indication: SCHIZOPHRENIA
     Route: 065
     Dates: start: 20130429, end: 20130512
  3. DIAZEPAM [Concomitant]
     Route: 065

REACTIONS (1)
  - Electrocardiogram QT prolonged [Fatal]
